FAERS Safety Report 4919470-5 (Version None)
Quarter: 2006Q1

REPORT INFORMATION
  Report Type: 
  Country: None (occurrence: None)
  Receive Date: 20060222
  Receipt Date: 20050930
  Transmission Date: 20060701
  Serious: Yes (Hospitalization)
  Sender: FDA-Public Use
  Company Number: PR-MERCK-0510USA01594

PATIENT
  Age: 60 Year
  Sex: Female
  Weight: 115 kg

DRUGS (1)
  1. VIOXX [Suspect]
     Indication: INTERVERTEBRAL DISC PROTRUSION
     Route: 048
     Dates: start: 19990101, end: 20040901

REACTIONS (4)
  - BACK PAIN [None]
  - DEEP VEIN THROMBOSIS [None]
  - PHLEBITIS [None]
  - THROMBOSIS [None]
